FAERS Safety Report 9603750 (Version 1)
Quarter: 2013Q4

REPORT INFORMATION
  Report Type: Report from Study
  Country: US (occurrence: US)
  Receive Date: 20131007
  Receipt Date: 20131007
  Transmission Date: 20140711
  Serious: No
  Sender: FDA-Public Use
  Company Number: US-009507513-1309USA010795

PATIENT
  Sex: Male

DRUGS (3)
  1. REBETOL [Suspect]
     Dosage: UNK
     Route: 048
     Dates: start: 1995, end: 1995
  2. INTERFERON (UNSPECIFIED) [Suspect]
     Indication: CHRONIC HEPATITIS C
     Dosage: UNK
     Route: 048
     Dates: start: 1995, end: 1995
  3. INTERFERON (UNSPECIFIED) [Suspect]
     Dosage: UNK
     Route: 048
     Dates: start: 20121024

REACTIONS (2)
  - Influenza like illness [Unknown]
  - Porphyria [Unknown]
